FAERS Safety Report 5377167-4 (Version None)
Quarter: 2007Q2

REPORT INFORMATION
  Report Type: 
  Country: None (occurrence: None)
  Receive Date: 20070629
  Receipt Date: 20070629
  Transmission Date: 20071010
  Serious: Yes (Hospitalization)
  Sender: FDA-Public Use
  Company Number: None

PATIENT
  Sex: Male
  Weight: 122.0176 kg

DRUGS (1)
  1. ALIMTA [Suspect]
     Indication: LUNG NEOPLASM MALIGNANT
     Dosage: 1000MG ONCE IV DRIP
     Route: 041
     Dates: start: 20070618, end: 20070618

REACTIONS (1)
  - BLOOD CREATININE INCREASED [None]
